FAERS Safety Report 11354791 (Version 1)
Quarter: 2015Q3

REPORT INFORMATION
  Report Type: Spontaneous
  Country: US (occurrence: US)
  Receive Date: 20150807
  Receipt Date: 20150807
  Transmission Date: 20151125
  Serious: No
  Sender: FDA-Public Use
  Company Number: US-JNJFOC-20150509651

PATIENT
  Age: 34 Month
  Sex: Female

DRUGS (2)
  1. MINOXIDIL 2% [Suspect]
     Active Substance: MINOXIDIL
     Route: 048
  2. MINOXIDIL 2% [Suspect]
     Active Substance: MINOXIDIL
     Indication: PRODUCT USED FOR UNKNOWN INDICATION
     Route: 048

REACTIONS (6)
  - Hypotension [Recovered/Resolved with Sequelae]
  - Flushing [Recovered/Resolved with Sequelae]
  - Tachycardia [Recovered/Resolved with Sequelae]
  - Product container issue [Unknown]
  - Vomiting [Recovered/Resolved with Sequelae]
  - Accidental exposure to product [Recovered/Resolved with Sequelae]
